FAERS Safety Report 5864350-4 (Version None)
Quarter: 2008Q3

REPORT INFORMATION
  Report Type: 
  Country: None (occurrence: None)
  Receive Date: 20080829
  Receipt Date: 20080617
  Transmission Date: 20090109
  Serious: No
  Sender: FDA-Public Use
  Company Number: US-ABBOTT-08P-163-0457741-00

PATIENT
  Sex: Female
  Weight: 50.848 kg

DRUGS (4)
  1. SIMCOR [Suspect]
     Indication: HIGH DENSITY LIPOPROTEIN INCREASED
     Dosage: 500MG/20MG QD
     Route: 048
     Dates: start: 20080512
  2. EPIPEN [Concomitant]
     Indication: ALLERGY TO ARTHROPOD STING
     Route: 050
  3. ACETYLSALICYLIC ACID SRT [Concomitant]
     Indication: FLUSHING
     Route: 048
  4. ACETYLSALICYLIC ACID SRT [Concomitant]
     Indication: PROPHYLAXIS

REACTIONS (2)
  - FLUSHING [None]
  - HEADACHE [None]
